FAERS Safety Report 4744876-7 (Version None)
Quarter: 2005Q3

REPORT INFORMATION
  Report Type: 
  Country: None (occurrence: None)
  Receive Date: 20050811
  Receipt Date: 20050801
  Transmission Date: 20060218
  Serious: Yes (Hospitalization)
  Sender: FDA-Public Use
  Company Number: S05-USA-03181-01

PATIENT
  Age: 48 Year
  Sex: Male

DRUGS (3)
  1. LEXAPRO [Suspect]
     Indication: ANXIETY
     Dosage: 10 MG ONCE PO
     Route: 048
     Dates: start: 20050616, end: 20050616
  2. LEXAPRO [Suspect]
     Indication: DEPRESSION
     Dosage: 10 MG ONCE PO
     Route: 048
     Dates: start: 20050616, end: 20050616
  3. RISPERDAL [Concomitant]

REACTIONS (4)
  - AGGRESSION [None]
  - FEELING JITTERY [None]
  - REFUSAL OF TREATMENT BY PATIENT [None]
  - SUICIDAL IDEATION [None]
